FAERS Safety Report 24561468 (Version 1)
Quarter: 2024Q4

REPORT INFORMATION
  Report Type: Spontaneous
  Country: US (occurrence: US)
  Receive Date: 20241029
  Receipt Date: 20241029
  Transmission Date: 20250115
  Serious: Yes (Other)
  Sender: VIFOR (INTERNATIONAL) INC.
  Company Number: US-Vifor (International) Inc.-VIT-2024-09855

PATIENT
  Age: 57 Year
  Sex: Male
  Weight: 103.5 kg

DRUGS (1)
  1. MIRCERA [Suspect]
     Active Substance: METHOXY POLYETHYLENE GLYCOL-EPOETIN BETA
     Indication: Nephrogenic anaemia
     Dosage: FIRST DOSE WAS 03-SEP-2024, SECOND DOSE WAS 17-SEP-2024 AND THIRD DOSE WAS 03-OCT-2024
     Route: 040
     Dates: start: 20240903, end: 20241003

REACTIONS (8)
  - Drug hypersensitivity [Unknown]
  - Dyspnoea [Unknown]
  - Feeling hot [Unknown]
  - Hyperhidrosis [Unknown]
  - Cough [Unknown]
  - Pruritus [Unknown]
  - Abdominal discomfort [Unknown]
  - Erythema [Unknown]

NARRATIVE: CASE EVENT DATE: 20240917
